FAERS Safety Report 18858102 (Version 2)
Quarter: 2021Q1

REPORT INFORMATION
  Report Type: Spontaneous
  Country: US (occurrence: US)
  Receive Date: 20210208
  Receipt Date: 20210315
  Transmission Date: 20210420
  Serious: Yes (Other)
  Sender: FDA-Public Use
  Company Number: US-TAKEDA-2021TUS006359

PATIENT
  Age: 55 Year
  Sex: Female
  Weight: 106.58 kg

DRUGS (37)
  1. ACETAMINOPHEN. [Concomitant]
     Active Substance: ACETAMINOPHEN
  2. LORATADINE. [Concomitant]
     Active Substance: LORATADINE
  3. XELJANZ [Concomitant]
     Active Substance: TOFACITINIB CITRATE
  4. MACROBID [CLARITHROMYCIN] [Concomitant]
     Active Substance: CLARITHROMYCIN
  5. BIOTIN [Concomitant]
     Active Substance: BIOTIN
  6. LOSARTAN. [Concomitant]
     Active Substance: LOSARTAN
  7. FAMOTIDINE. [Concomitant]
     Active Substance: FAMOTIDINE
  8. PREDNISONE. [Concomitant]
     Active Substance: PREDNISONE
  9. FENOFIBRATE. [Concomitant]
     Active Substance: FENOFIBRATE
  10. COMBIVENT [Concomitant]
     Active Substance: ALBUTEROL SULFATE\IPRATROPIUM BROMIDE
  11. GAMMAGARD LIQUID [Suspect]
     Active Substance: HUMAN IMMUNOGLOBULIN G
     Indication: IMMUNODEFICIENCY COMMON VARIABLE
     Dosage: 50 GRAM, Q4WEEKS
     Route: 042
     Dates: start: 20210127
  12. OZEMPIC [Concomitant]
     Active Substance: SEMAGLUTIDE
  13. AMILORIDE [Concomitant]
     Active Substance: AMILORIDE
  14. VALACYCLOVIR [Concomitant]
     Active Substance: VALACYCLOVIR HYDROCHLORIDE
  15. OXYCODONE [Concomitant]
     Active Substance: OXYCODONE
  16. FUROSEMIDE. [Concomitant]
     Active Substance: FUROSEMIDE
  17. FOLIC ACID. [Concomitant]
     Active Substance: FOLIC ACID
  18. CHOLESTYRAMINE. [Concomitant]
     Active Substance: CHOLESTYRAMINE
  19. HYDROCHLOROTHIAZIDE. [Concomitant]
     Active Substance: HYDROCHLOROTHIAZIDE
  20. CALCIUM 600 + D3 PLUS MINERALS [Concomitant]
  21. PRIVIGEN [Concomitant]
     Active Substance: HUMAN IMMUNOGLOBULIN G
     Indication: PRODUCT USED FOR UNKNOWN INDICATION
     Route: 065
  22. EPINEPHRINE. [Concomitant]
     Active Substance: EPINEPHRINE
  23. NOVOLOG [Concomitant]
     Active Substance: INSULIN ASPART
  24. B12 ACTIVE [Concomitant]
  25. PILOCARPINE. [Concomitant]
     Active Substance: PILOCARPINE
  26. DIPHENHYDRAMINE. [Concomitant]
     Active Substance: DIPHENHYDRAMINE
  27. SODIUM CHLORIDE. [Concomitant]
     Active Substance: SODIUM CHLORIDE
  28. PRAVASTATIN. [Concomitant]
     Active Substance: PRAVASTATIN
  29. LANSOPRAZOLE. [Concomitant]
     Active Substance: LANSOPRAZOLE
  30. POTASSIUM [Concomitant]
     Active Substance: POTASSIUM
  31. GABAPENTIN. [Concomitant]
     Active Substance: GABAPENTIN
  32. XARELTO [Concomitant]
     Active Substance: RIVAROXABAN
  33. TRESIBA [Concomitant]
     Active Substance: INSULIN DEGLUDEC
  34. FLUCONAZOLE. [Concomitant]
     Active Substance: FLUCONAZOLE
  35. RECLAST [Concomitant]
     Active Substance: ZOLEDRONIC ACID
  36. CALCIUM [Concomitant]
     Active Substance: CALCIUM
  37. VITAMIN D3 [Concomitant]
     Active Substance: CHOLECALCIFEROL

REACTIONS (4)
  - Foot fracture [Recovering/Resolving]
  - Tendon rupture [Recovering/Resolving]
  - Fall [Unknown]
  - Neuropathy peripheral [Unknown]

NARRATIVE: CASE EVENT DATE: 20201223
